FAERS Safety Report 8967116 (Version 2)
Quarter: 2013Q2

REPORT INFORMATION
  Report Type: Report from Study
  Country: CA (occurrence: CA)
  Receive Date: 20121214
  Receipt Date: 20130517
  Transmission Date: 20140414
  Serious: Yes (Other)
  Sender: FDA-Public Use
  Company Number: CA-ABBOTT-12P-028-1019960-00

PATIENT
  Age: 54 Year
  Sex: Female
  Weight: 137.56 kg

DRUGS (5)
  1. HUMIRA [Suspect]
     Indication: RHEUMATOID ARTHRITIS
     Route: 058
     Dates: start: 20110131, end: 20121129
  2. METHOTREXATE [Concomitant]
     Indication: RHEUMATOID ARTHRITIS
     Route: 048
  3. MICARDIS PLUS [Concomitant]
     Indication: HYPERTENSION
     Dosage: 80 MG / 25 MG
     Route: 048
  4. FELODIPINE [Concomitant]
     Indication: HYPERTENSION
     Route: 048
  5. PMS ATENOLOL [Concomitant]
     Indication: HYPERTENSION
     Dosage: OD
     Route: 048

REACTIONS (2)
  - Deafness [Recovering/Resolving]
  - Ear infection [Recovering/Resolving]
